FAERS Safety Report 8493754 (Version 10)
Quarter: 2013Q2

REPORT INFORMATION
  Report Type: Report from Study
  Country: TR (occurrence: TR)
  Receive Date: 20120404
  Receipt Date: 20130625
  Transmission Date: 20140414
  Serious: Yes (Other)
  Sender: FDA-Public Use
  Company Number: TR-PFIZER INC-2012081062

PATIENT
  Age: 15 Month
  Sex: Male
  Weight: 13.5 kg

DRUGS (3)
  1. REFACTO AF [Suspect]
     Indication: PROPHYLAXIS
     Dosage: 500 IU, WEEKLY
     Route: 042
     Dates: start: 20110919
  2. REFACTO AF [Suspect]
     Indication: FACTOR VIII DEFICIENCY
     Dosage: 1000 IU, WEEKLY
     Route: 042
  3. REFACTO AF [Suspect]
     Dosage: UNK

REACTIONS (1)
  - Factor VIII inhibition [Not Recovered/Not Resolved]
